FAERS Safety Report 9025275 (Version 1)
Quarter: 2013Q1

REPORT INFORMATION
  Report Type: Spontaneous
  Country: BR (occurrence: BR)
  Receive Date: 20130122
  Receipt Date: 20130122
  Transmission Date: 20140127
  Serious: Yes (Other)
  Sender: FDA-Public Use
  Company Number: BR-PFIZER INC-2013022218

PATIENT
  Age: 78 Year
  Sex: Female

DRUGS (10)
  1. LYRICA [Suspect]
     Indication: FIBROMYALGIA
     Dosage: UNK
     Route: 048
     Dates: start: 20120817
  2. AMITRIPTYLINE [Concomitant]
     Indication: DEPRESSION
     Dosage: UNK
     Dates: start: 2010
  3. AMLODIPINE [Concomitant]
     Indication: BLOOD PRESSURE ABNORMAL
     Dosage: UNK
     Dates: start: 2010
  4. EQUILID [Concomitant]
     Indication: CONVULSION
     Dosage: UNK
     Dates: start: 2010
  5. LOSARTAN [Concomitant]
     Indication: BLOOD PRESSURE ABNORMAL
     Dosage: UNK
     Dates: start: 2010
  6. MELOXICAM [Concomitant]
     Indication: INFLAMMATION
     Dosage: UNK
     Dates: start: 2010
  7. METFORMIN [Concomitant]
     Indication: DIABETES MELLITUS
     Dosage: UNK
     Dates: start: 2010
  8. FLUOXETINE [Concomitant]
     Indication: DEPRESSION
     Dosage: UNK
     Dates: start: 2011
  9. OMEPRAZOLE [Concomitant]
     Indication: GASTRIC DISORDER
     Dosage: UNK
     Dates: start: 2003
  10. STILNOX [Concomitant]
     Indication: DEPRESSION
     Dosage: UNK
     Dates: start: 201205

REACTIONS (4)
  - Activities of daily living impaired [Unknown]
  - Vision blurred [Unknown]
  - Malaise [Unknown]
  - Drug intolerance [Unknown]
